FAERS Safety Report 25558251 (Version 1)
Quarter: 2025Q3

REPORT INFORMATION
  Report Type: Spontaneous
  Country: JP (occurrence: JP)
  Receive Date: 20250715
  Receipt Date: 20250715
  Transmission Date: 20251021
  Serious: Yes (Death, Other)
  Sender: DAIICHI
  Company Number: JP-DSJP-DS-2025-149427-JP

PATIENT
  Age: 93 Year
  Sex: Female
  Weight: 42 kg

DRUGS (4)
  1. EDOXABAN TOSYLATE [Suspect]
     Active Substance: EDOXABAN TOSYLATE
     Indication: Atrial fibrillation
     Dosage: 15 MG, QD
     Route: 048
     Dates: start: 2025, end: 20250625
  2. ENTRESTO [Concomitant]
     Active Substance: SACUBITRIL\VALSARTAN
     Indication: Cardiac failure
     Dosage: 50 MG, BID
     Route: 048
     Dates: end: 20250625
  3. NIFEDIPINE [Concomitant]
     Active Substance: NIFEDIPINE
     Indication: Hypertension
     Dosage: 40 MG, BID
     Route: 048
     Dates: end: 20250625
  4. AZOSEMIDE [Concomitant]
     Active Substance: AZOSEMIDE
     Indication: Cardiac failure congestive
     Dosage: 30 MG, QD
     Route: 048
     Dates: end: 20250625

REACTIONS (1)
  - Renal impairment [Fatal]

NARRATIVE: CASE EVENT DATE: 20250609
